FAERS Safety Report 10625837 (Version 3)
Quarter: 2014Q4

REPORT INFORMATION
  Report Type: Spontaneous
  Country: US (occurrence: US)
  Receive Date: 20141204
  Receipt Date: 20141222
  Transmission Date: 20150529
  Serious: Yes (Other)
  Sender: FDA-Public Use
  Company Number: ALCN2014US006595

PATIENT
  Age: 68 Year
  Sex: Female

DRUGS (1)
  1. SYSTANE ULTRA [Suspect]
     Active Substance: POLYETHYLENE GLYCOL 400\PROPYLENE GLYCOL
     Indication: DRY EYE
     Dosage: 1 GTT, BID
     Route: 047
     Dates: start: 20141113, end: 20141120

REACTIONS (4)
  - Eyelid erosion [Recovering/Resolving]
  - Conjunctival oedema [Recovering/Resolving]
  - Keratitis [Recovering/Resolving]
  - Ulcerative keratitis [Recovering/Resolving]

NARRATIVE: CASE EVENT DATE: 20141114
